FAERS Safety Report 7238916-3 (Version None)
Quarter: 2011Q1

REPORT INFORMATION
  Report Type: 
  Country: None (occurrence: None)
  Receive Date: 20110121
  Receipt Date: 20110114
  Transmission Date: 20110831
  Serious: Yes (Other)
  Sender: FDA-Public Use
  Company Number: PH-SANOFI-AVENTIS-2011SA002666

PATIENT
  Age: 59 Year
  Sex: Female

DRUGS (3)
  1. GLIMEPIRIDE [Concomitant]
     Indication: TYPE 2 DIABETES MELLITUS
     Route: 048
  2. INSULIN GLARGINE [Suspect]
     Indication: TYPE 2 DIABETES MELLITUS
     Route: 058
     Dates: start: 20090101
  3. CARDIAC THERAPY [Concomitant]

REACTIONS (1)
  - BREAST MASS [None]
